FAERS Safety Report 8693307 (Version 6)
Quarter: 2014Q1

REPORT INFORMATION
  Report Type: Spontaneous
  Country: GB (occurrence: None)
  Receive Date: 20120712
  Receipt Date: 20140129
  Transmission Date: 20141002
  Serious: Yes (Death)
  Sender: FDA-Public Use
  Company Number: AUR-APL-2012-02905

PATIENT
  Age: 46 Year
  Sex: Male
  Weight: 104.2 kg

DRUGS (6)
  1. CITALOPRAM(CITALOPRAM) [Suspect]
     Indication: DEPRESSED MOOD
     Dosage: (30 MG),ORAL
     Route: 048
  2. CITALOPRAM(CITALOPRAM) [Suspect]
     Indication: DEPRESSION
     Dosage: (30 MG),ORAL
     Route: 048
  3. MIRTAZAPINE [Suspect]
     Indication: DEPRESSED MOOD
     Dosage: (40 MG),ORAL
     Route: 048
  4. MIRTAZAPINE [Suspect]
     Indication: DEPRESSION
     Dosage: (40 MG),ORAL
     Route: 048
  5. CLOZARIL [Suspect]
     Indication: SCHIZOPHRENIA
     Dosage: ORAL
     Route: 048
     Dates: start: 20010701
  6. ARIPIPRAZOLE [Suspect]
     Indication: SCHIZOPHRENIA
     Dosage: (10 MG),ORAL
     Route: 048

REACTIONS (3)
  - Cardiac failure congestive [None]
  - Congestive cardiomyopathy [None]
  - Antipsychotic drug level above therapeutic [None]
